FAERS Safety Report 4690290-2 (Version None)
Quarter: 2005Q2

REPORT INFORMATION
  Report Type: 
  Country: None (occurrence: None)
  Receive Date: 20050615
  Receipt Date: 20050517
  Transmission Date: 20051028
  Serious: Yes (Hospitalization)
  Sender: FDA-Public Use
  Company Number: JP-GLAXOSMITHKLINE-B0381726A

PATIENT
  Age: 71 Year
  Sex: Male

DRUGS (5)
  1. PAXIL [Suspect]
     Indication: ANXIETY
     Dosage: 40MG PER DAY
     Route: 048
     Dates: start: 20050427, end: 20050510
  2. HYPEN [Concomitant]
     Indication: PAIN
     Dosage: 200MG TWICE PER DAY
     Route: 048
  3. MUCOSTA [Concomitant]
     Indication: PAIN
     Dosage: 100MG TWICE PER DAY
     Route: 048
  4. MYONAL [Concomitant]
     Indication: PAIN
     Dosage: 50MG TWICE PER DAY
     Route: 048
  5. OPALMON [Concomitant]
     Indication: PAIN
     Dosage: 10MCG TWICE PER DAY
     Route: 048

REACTIONS (7)
  - CHEST PAIN [None]
  - DYSURIA [None]
  - HEADACHE [None]
  - HYPONATRAEMIA [None]
  - PAIN IN EXTREMITY [None]
  - PHARYNGOLARYNGEAL PAIN [None]
  - SWEAT GLAND DISORDER [None]
